FAERS Safety Report 4467516-3 (Version None)
Quarter: 2004Q4

REPORT INFORMATION
  Report Type: 
  Country: None (occurrence: None)
  Receive Date: 20041004
  Receipt Date: 20040927
  Transmission Date: 20050328
  Serious: Yes (Hospitalization)
  Sender: FDA-Public Use
  Company Number: KII-2004-0013442

PATIENT
  Age: 12 Year
  Sex: Female

DRUGS (2)
  1. OXYCONTIN [Suspect]
     Dosage: SEE TEXT, ORAL
     Route: 048
     Dates: start: 20040904, end: 20040904
  2. METHYLENE CHLORIDE [Concomitant]

REACTIONS (9)
  - ACCIDENTAL EXPOSURE [None]
  - ACCIDENTAL OVERDOSE [None]
  - DRUG SCREEN POSITIVE [None]
  - HEART RATE INCREASED [None]
  - MIOSIS [None]
  - NAUSEA [None]
  - PRURITUS [None]
  - RESPIRATORY DEPRESSION [None]
  - SOMNOLENCE [None]
